FAERS Safety Report 18686054 (Version 1)
Quarter: 2020Q4

REPORT INFORMATION
  Report Type: Spontaneous
  Country: US (occurrence: US)
  Receive Date: 20201230
  Receipt Date: 20201230
  Transmission Date: 20210114
  Serious: Yes (Death, Hospitalization, Other)
  Sender: FDA-Public Use
  Company Number: US-PURDUE-USA-2020-0185244

PATIENT
  Sex: Female

DRUGS (1)
  1. OXYCONTIN [Suspect]
     Active Substance: OXYCODONE HYDROCHLORIDE
     Indication: PAIN
     Dosage: UNKNOWN
     Route: 048

REACTIONS (6)
  - Exposure during pregnancy [Unknown]
  - Overdose [Unknown]
  - Death [Fatal]
  - Unresponsive to stimuli [Recovered/Resolved]
  - Loss of consciousness [Unknown]
  - Drug dependence [Unknown]

NARRATIVE: CASE EVENT DATE: 20161130
